FAERS Safety Report 12458836 (Version 2)
Quarter: 2016Q2

REPORT INFORMATION
  Report Type: Report from Study
  Country: US (occurrence: US)
  Receive Date: 20160613
  Receipt Date: 20160624
  Transmission Date: 20160815
  Serious: Yes (Death, Life-Threatening, Other)
  Sender: FDA-Public Use
  Company Number: US-ROCHE-1772491

PATIENT

DRUGS (2)
  1. RITUXIMAB [Suspect]
     Active Substance: RITUXIMAB
     Indication: HAIRY CELL LEUKAEMIA
     Dosage: DAY 1, 15 FOR 6 X 28-DAY CYCLES.
     Route: 042
  2. BENDAMUSTINE [Suspect]
     Active Substance: BENDAMUSTINE
     Indication: HAIRY CELL LEUKAEMIA
     Dosage: DAYS 1 AND 2 EACH CYCLE.
     Route: 065

REACTIONS (8)
  - Sepsis [Fatal]
  - Pleural effusion [Recovered/Resolved]
  - Hyperglycaemia [Recovered/Resolved]
  - Dyspnoea [Recovered/Resolved]
  - Dyspepsia [Recovered/Resolved]
  - Febrile neutropenia [Recovered/Resolved]
  - Chills [Recovered/Resolved]
  - Lung infection [Fatal]

NARRATIVE: CASE EVENT DATE: 20120209
